FAERS Safety Report 13546235 (Version 3)
Quarter: 2017Q3

REPORT INFORMATION
  Report Type: Spontaneous
  Country: IT (occurrence: IT)
  Receive Date: 20170515
  Receipt Date: 20170714
  Transmission Date: 20171127
  Serious: Yes (Hospitalization)
  Sender: FDA-Public Use
  Company Number: IT-JNJFOC-20170506598

PATIENT
  Age: 61 Year
  Sex: Female
  Weight: 100 kg

DRUGS (2)
  1. CAELYX [Suspect]
     Active Substance: DOXORUBICIN HYDROCHLORIDE
     Indication: OVARIAN CANCER RECURRENT
     Route: 042
     Dates: start: 20170418, end: 20170418
  2. YONDELIS [Suspect]
     Active Substance: TRABECTEDIN
     Indication: OVARIAN CANCER RECURRENT
     Route: 042
     Dates: start: 20170418, end: 20170418

REACTIONS (6)
  - Neutropenia [Not Recovered/Not Resolved]
  - Vomiting [Not Recovered/Not Resolved]
  - Leukopenia [Unknown]
  - Nausea [Not Recovered/Not Resolved]
  - Thrombocytopenia [Not Recovered/Not Resolved]
  - Abdominal distension [Not Recovered/Not Resolved]

NARRATIVE: CASE EVENT DATE: 20170504
